FAERS Safety Report 21521791 (Version 3)
Quarter: 2023Q4

REPORT INFORMATION
  Report Type: Spontaneous
  Country: AR (occurrence: AR)
  Receive Date: 20221028
  Receipt Date: 20231113
  Transmission Date: 20240109
  Serious: No
  Sender: FDA-Public Use
  Company Number: AR-PFIZER INC-PV202200081226

PATIENT
  Age: 12 Year
  Sex: Female

DRUGS (2)
  1. GENOTROPIN [Suspect]
     Active Substance: SOMATROPIN
     Indication: Short stature
     Dosage: MORE THAN 2MG 6 TIMES PER WEEK
     Dates: start: 20210830
  2. GENOTROPIN [Suspect]
     Active Substance: SOMATROPIN
     Dosage: 2.4MG, 6 TIMES PER WEEK

REACTIONS (4)
  - Wrong technique in device usage process [Unknown]
  - Expired device used [Unknown]
  - Device mechanical issue [Unknown]
  - Device physical property issue [Unknown]
